FAERS Safety Report 9638180 (Version 1)
Quarter: 2013Q4

REPORT INFORMATION
  Report Type: Spontaneous
  Country: US (occurrence: US)
  Receive Date: 20131022
  Receipt Date: 20131022
  Transmission Date: 20140711
  Serious: No
  Sender: FDA-Public Use
  Company Number: US-PFIZER INC-2013299418

PATIENT
  Age: 75 Year
  Sex: Female

DRUGS (15)
  1. SUTENT [Suspect]
     Indication: RENAL CANCER
     Dosage: 25 MG, UNK
     Dates: start: 20130425
  2. ALLOPURINOL [Concomitant]
     Dosage: UNK
  3. ASPIRIN [Concomitant]
     Dosage: UNK
  4. CALCIUM [Concomitant]
     Dosage: UNK
  5. CENTRUM [Concomitant]
     Dosage: UNK
  6. CINNAMON [Concomitant]
     Dosage: UNK
  7. FUROSEMIDE [Concomitant]
     Dosage: UNK
  8. GABAPENTIN [Concomitant]
     Dosage: UNK
  9. GARLIC [Concomitant]
     Dosage: UNK
  10. ISOSORBIDE DINITRATE [Concomitant]
     Dosage: UNK
  11. METFORMIN HYDROCHLORIDE [Concomitant]
     Dosage: UNK
  12. ENALAPRIL MALEATE [Concomitant]
     Dosage: UNK
  13. METOPROLOL TARTRATE [Concomitant]
     Dosage: UNK
  14. OMEPRAZOLE [Concomitant]
     Dosage: UNK
  15. SIMVASTATIN [Concomitant]
     Dosage: UNK

REACTIONS (1)
  - Renal disorder [Unknown]
